FAERS Safety Report 9584274 (Version 1)
Quarter: 2013Q4

REPORT INFORMATION
  Report Type: Spontaneous
  Country: US (occurrence: US)
  Receive Date: 20131002
  Receipt Date: 20131002
  Transmission Date: 20140711
  Serious: No
  Sender: FDA-Public Use
  Company Number: US-AMGEN-USASP2013053079

PATIENT
  Age: 59 Year
  Sex: Male

DRUGS (8)
  1. ENBREL [Suspect]
     Indication: RHEUMATOID ARTHRITIS
     Dosage: 50 MG, QWK
     Route: 058
     Dates: start: 20130712
  2. PRISTIQ [Concomitant]
     Dosage: UNK
  3. GABAPENTIN [Concomitant]
     Dosage: UNK
  4. BACLOFEN [Concomitant]
     Dosage: UNK
  5. SINGULAIR [Concomitant]
     Dosage: UNK
  6. TRAMADOL [Concomitant]
     Dosage: UNK
  7. METHOTREXATE [Concomitant]
     Dosage: UNK
  8. PREDNISONE [Concomitant]
     Dosage: UNK

REACTIONS (2)
  - Penis disorder [Unknown]
  - Nasopharyngitis [Unknown]
